FAERS Safety Report 10543667 (Version 1)
Quarter: 2014Q4

REPORT INFORMATION
  Report Type: Spontaneous
  Country: GB (occurrence: GB)
  Receive Date: 20141027
  Receipt Date: 20141027
  Transmission Date: 20150529
  Serious: Yes (Other)
  Sender: FDA-Public Use
  Company Number: CHNY2014GB001164

PATIENT

DRUGS (3)
  1. VENLAFAXINE [Concomitant]
     Active Substance: VENLAFAXINE HYDROCHLORIDE
     Dosage: ONGOING
     Route: 048
     Dates: start: 20140923
  2. NICOTINE TRANSDERMAL SYSTEM [Suspect]
     Active Substance: NICOTINE
     Indication: SMOKING CESSATION THERAPY
     Dosage: 21 MG, QD
     Route: 061
     Dates: start: 20141006, end: 20141007
  3. NICORETTE//NICOTINE [Concomitant]
     Indication: SMOKING CESSATION THERAPY
     Dosage: ONGOING
     Route: 048
     Dates: start: 20141006

REACTIONS (3)
  - Burning sensation [Recovering/Resolving]
  - Rash [Recovering/Resolving]
  - Pain [Recovering/Resolving]

NARRATIVE: CASE EVENT DATE: 20141007
